FAERS Safety Report 6675412-6 (Version None)
Quarter: 2010Q2

REPORT INFORMATION
  Report Type: 
  Country: None (occurrence: None)
  Receive Date: 20100409
  Receipt Date: 20100331
  Transmission Date: 20101027
  Serious: Yes (Hospitalization)
  Sender: FDA-Public Use
  Company Number: CA-AMGEN-KDL323146

PATIENT
  Sex: Female
  Weight: 88.5 kg

DRUGS (3)
  1. ENBREL [Suspect]
     Indication: RHEUMATOID ARTHRITIS
     Route: 058
     Dates: start: 20081001, end: 20091001
  2. PREDNISONE TAB [Suspect]
     Dates: start: 20080201
  3. PAXIL [Concomitant]

REACTIONS (8)
  - BURNING SENSATION [None]
  - HAEMOTHORAX [None]
  - LOWER RESPIRATORY TRACT INFECTION FUNGAL [None]
  - NASOPHARYNGITIS [None]
  - PNEUMONIA CRYPTOCOCCAL [None]
  - PYOTHORAX [None]
  - RHEUMATOID ARTHRITIS [None]
  - WEIGHT DECREASED [None]
